FAERS Safety Report 6306191-X (Version None)
Quarter: 2009Q3

REPORT INFORMATION
  Report Type: 
  Country: None (occurrence: None)
  Receive Date: 20090812
  Receipt Date: 20090731
  Transmission Date: 20100115
  Serious: Yes (Other)
  Sender: FDA-Public Use
  Company Number: US-ROCHE-647453

PATIENT
  Age: 24 Year
  Sex: Male

DRUGS (4)
  1. ACCUTANE [Suspect]
     Indication: ACNE
     Dosage: INDICATION: SEVERE ACNE ON THE BACK WITH MILD ACNE ON THE CHEST
     Route: 048
     Dates: start: 20090101
  2. ACCUTANE [Suspect]
     Dosage: DOSE REDUCED
     Route: 048
  3. ACCUTANE [Suspect]
     Dosage: DOSE INCREASED
     Route: 048
  4. PROPECIA [Concomitant]

REACTIONS (1)
  - DEAFNESS UNILATERAL [None]
